FAERS Safety Report 8490992-6 (Version None)
Quarter: 2012Q3

REPORT INFORMATION
  Report Type: 
  Country: None (occurrence: None)
  Receive Date: 20120706
  Receipt Date: 20120627
  Transmission Date: 20120928
  Serious: Yes (Hospitalization)
  Sender: FDA-Public Use
  Company Number: US-ELI_LILLY_AND_COMPANY-US201207000081

PATIENT
  Sex: Female

DRUGS (2)
  1. ALIMTA [Suspect]
     Dosage: 500 MG, UNKNOWN
     Route: 042
     Dates: start: 20120502
  2. ALIMTA [Suspect]
     Dosage: 100 MG, UNKNOWN
     Route: 042
     Dates: start: 20120502

REACTIONS (1)
  - HOSPITALISATION [None]
